FAERS Safety Report 16451118 (Version 1)
Quarter: 2019Q3

REPORT INFORMATION
  Report Type: Spontaneous
  Country: US (occurrence: US)
  Receive Date: 20190618
  Receipt Date: 20190618
  Transmission Date: 20191004
  Serious: Yes (Life-Threatening, Disabling)
  Sender: FDA-Public Use
  Company Number: None

PATIENT
  Age: 67 Year
  Sex: Female
  Weight: 101.7 kg

DRUGS (1)
  1. DULOXETINE. [Suspect]
     Active Substance: DULOXETINE
     Indication: ANXIETY DISORDER
     Dosage: ?          QUANTITY:1 CAPSULE(S);?
     Route: 048

REACTIONS (13)
  - Nausea [None]
  - Suicidal ideation [None]
  - Paraesthesia [None]
  - Decreased appetite [None]
  - Dyspepsia [None]
  - Feeling abnormal [None]
  - Cognitive disorder [None]
  - Fatigue [None]
  - Anxiety [None]
  - Dizziness [None]
  - Arthralgia [None]
  - Depression [None]
  - Disturbance in attention [None]

NARRATIVE: CASE EVENT DATE: 20190607
